FAERS Safety Report 8851933 (Version 1)
Quarter: 2012Q4

REPORT INFORMATION
  Report Type: 
  Country: US (occurrence: US)
  Receive Date: 20121022
  Receipt Date: 20121022
  Transmission Date: 20130627
  Serious: Yes (Other)
  Sender: FDA-Public Use
  Company Number: US-ELI_LILLY_AND_COMPANY-US201210003538

PATIENT
  Sex: Female

DRUGS (4)
  1. CYMBALTA [Suspect]
     Indication: DEPRESSION
     Dosage: 30 mg, qd
     Dates: start: 201201
  2. CYMBALTA [Suspect]
     Dosage: UNK, unknown
  3. ANTIHYPERTENSIVES [Concomitant]
     Dosage: UNK, unknown
  4. DRUG USED IN DIABETES [Concomitant]
     Dosage: UNK, unknown

REACTIONS (15)
  - Skin plaque [Unknown]
  - Skin ulcer [Unknown]
  - Skin exfoliation [Unknown]
  - Rash generalised [Not Recovered/Not Resolved]
  - Pigmentation disorder [Unknown]
  - Pain of skin [Unknown]
  - Scratch [Unknown]
  - Skin haemorrhage [Unknown]
  - Psoriasis [Unknown]
  - Scar [Unknown]
  - Immunodeficiency [Unknown]
  - Sinusitis [Not Recovered/Not Resolved]
  - Diarrhoea [Not Recovered/Not Resolved]
  - Vomiting [Not Recovered/Not Resolved]
  - Pruritus [Unknown]
